FAERS Safety Report 8617024-0 (Version None)
Quarter: 2012Q3

REPORT INFORMATION
  Report Type: 
  Country: None (occurrence: None)
  Receive Date: 20120823
  Receipt Date: 20120813
  Transmission Date: 20120928
  Serious: No
  Sender: FDA-Public Use
  Company Number: US-009507513-1208USA006572

PATIENT

DRUGS (2)
  1. PEG-INTRON [Suspect]
     Indication: HEPATITIS C
     Dosage: 80 MICROGRAM, QW
     Route: 058
     Dates: start: 20120201
  2. REBETOL [Suspect]
     Dosage: 400 MG, BID
     Route: 048
     Dates: start: 20120201

REACTIONS (2)
  - ALOPECIA [None]
  - SKIN EXFOLIATION [None]
